FAERS Safety Report 12160222 (Version 3)
Quarter: 2016Q1

REPORT INFORMATION
  Report Type: Spontaneous
  Country: JP (occurrence: JP)
  Receive Date: 20160308
  Receipt Date: 20160323
  Transmission Date: 20160526
  Serious: Yes (Hospitalization)
  Sender: FDA-Public Use
  Company Number: JP-BIOCRYST PHARMACEUTICALS, INC.-2016BCR00069

PATIENT
  Age: 78 Year
  Sex: Female

DRUGS (3)
  1. NEOPHYLLIN INJECTION [Concomitant]
     Indication: ASTHMA
     Dosage: 250 MG, 1X/DAY
     Route: 042
     Dates: start: 20160213, end: 20160213
  2. RAPIACTA [Suspect]
     Active Substance: PERAMIVIR
     Indication: INFLUENZA
     Dosage: 300 MG, UNK
     Route: 042
     Dates: start: 20160213, end: 20160213
  3. CALONAL [Concomitant]
     Active Substance: ACETAMINOPHEN
     Indication: INFLUENZA
     Dosage: UNK
     Route: 048
     Dates: start: 20160213, end: 20160214

REACTIONS (2)
  - Enterocolitis haemorrhagic [Recovered/Resolved]
  - Diarrhoea [Recovered/Resolved]

NARRATIVE: CASE EVENT DATE: 20160215
